FAERS Safety Report 5003899-3 (Version None)
Quarter: 2006Q2

REPORT INFORMATION
  Report Type: 
  Country: None (occurrence: None)
  Receive Date: 20060515
  Receipt Date: 20060503
  Transmission Date: 20061013
  Serious: Yes (Hospitalization)
  Sender: FDA-Public Use
  Company Number: MEDI-0004553

PATIENT
  Age: 5 Month
  Weight: 3.47 kg

DRUGS (3)
  1. SYNAGIS [Suspect]
     Indication: ANTIVIRAL PROPHYLAXIS
     Dosage: 50 + 82 MG, 1 IN 30 D, INTRAMUSCULAR
     Route: 030
     Dates: start: 20051130, end: 20051130
  2. SYNAGIS [Suspect]
     Indication: ANTIVIRAL PROPHYLAXIS
     Dosage: 50 + 82 MG, 1 IN 30 D, INTRAMUSCULAR
     Route: 030
     Dates: start: 20060320, end: 20060320
  3. SYNAGIS [Suspect]
     Indication: ANTIVIRAL PROPHYLAXIS
     Dosage: 50 + 82 MG, 1 IN 30 D, INTRAMUSCULAR
     Route: 030
     Dates: start: 20051214

REACTIONS (3)
  - BRONCHIOLITIS [None]
  - FEEDING DISORDER OF INFANCY OR EARLY CHILDHOOD [None]
  - RESPIRATORY FAILURE [None]
